FAERS Safety Report 15200953 (Version 1)
Quarter: 2018Q3

REPORT INFORMATION
  Report Type: Spontaneous
  Country: US (occurrence: US)
  Receive Date: 20180726
  Receipt Date: 20180726
  Transmission Date: 20181010
  Serious: Yes (Other)
  Sender: FDA-Public Use
  Company Number: US-ALVOGEN-2018-ALVOGEN-096848

PATIENT
  Age: 47 Year
  Sex: Female

DRUGS (3)
  1. ACETAMINOPHEN/HYDROCODONE [Concomitant]
     Active Substance: ACETAMINOPHEN\HYDROCODONE
     Indication: TUMOUR PAIN
  2. MORPHINE/MORPHINE SULPHATE [Concomitant]
     Indication: TUMOUR PAIN
  3. NAPROXEN. [Suspect]
     Active Substance: NAPROXEN
     Indication: TUMOUR PAIN

REACTIONS (4)
  - Dysgeusia [Unknown]
  - Periorbital oedema [Unknown]
  - Fatigue [Unknown]
  - Nausea [Unknown]
